FAERS Safety Report 6109692 (Version 7)
Quarter: 2013Q2

REPORT INFORMATION
  Report Type: Spontaneous
  Country: US (occurrence: US)
  Receive Date: 20060622
  Receipt Date: 20130425
  Transmission Date: 20140414
  Serious: Yes (Death, Other)
  Sender: FDA-Public Use
  Company Number: US-JNJFOC-20060100588

PATIENT
  Age: 27 Year
  Sex: Male
  Weight: 68.95 kg

DRUGS (10)
  1. DURAGESIC [Suspect]
     Indication: PAIN
     Route: 062
     Dates: start: 20031215
  2. DURAGESIC [Suspect]
     Indication: PAIN
     Route: 062
     Dates: start: 20030506
  3. DURAGESIC [Suspect]
     Indication: PAIN
     Route: 062
     Dates: start: 20000619
  4. DURAGESIC [Suspect]
     Indication: PAIN
     Route: 062
     Dates: start: 20000316
  5. DURAGESIC [Suspect]
     Indication: PAIN
     Route: 062
     Dates: start: 20000111
  6. CELEXA [Interacting]
     Indication: PRODUCT USED FOR UNKNOWN INDICATION
     Route: 065
  7. MIRTAZAPINE [Interacting]
     Indication: PRODUCT USED FOR UNKNOWN INDICATION
     Route: 065
  8. MYLAN FENTANYL TRANSDERMAL SYSTEM [Suspect]
     Indication: PRODUCT USED FOR UNKNOWN INDICATION
     Route: 062
  9. DIAZEPAM [Concomitant]
     Route: 065
  10. DIPHENHYDRAMINE [Concomitant]
     Route: 065

REACTIONS (5)
  - Accidental overdose [Fatal]
  - Device leakage [Fatal]
  - Drug interaction [Fatal]
  - Loss of consciousness [Unknown]
  - Headache [Unknown]
